FAERS Safety Report 6676672-8 (Version None)
Quarter: 2010Q2

REPORT INFORMATION
  Report Type: 
  Country: None (occurrence: None)
  Receive Date: 20100412
  Receipt Date: 20100330
  Transmission Date: 20101027
  Serious: Yes (Hospitalization)
  Sender: FDA-Public Use
  Company Number: US-ELI_LILLY_AND_COMPANY-US201003008488

PATIENT
  Sex: Female
  Weight: 72.381 kg

DRUGS (20)
  1. GEMCITABINE HCL [Suspect]
     Indication: BREAST CANCER METASTATIC
     Dosage: 2500 MG/M2, OTHER
     Route: 042
     Dates: start: 20090904
  2. BEVACIZUMAB [Suspect]
     Indication: BREAST CANCER METASTATIC
     Dosage: 10 MG/KG, OTHER
     Route: 042
     Dates: start: 20090904
  3. METOPROLOL TARTRATE [Concomitant]
     Indication: HYPERTENSION
     Dates: start: 20040101
  4. DIOVAN [Concomitant]
     Indication: HYPERTENSION
     Dates: start: 20090101, end: 20100329
  5. HYDROCHLOROTHIAZIDE [Concomitant]
     Indication: HYPERTENSION
     Dates: start: 20100101, end: 20100329
  6. AMLODIPINE [Concomitant]
     Indication: HYPERTENSION
     Dates: start: 20100101, end: 20100329
  7. SYNTHROID [Concomitant]
     Indication: HYPOTHYROIDISM
     Dates: start: 19930101
  8. MAGNESIUM OXIDE [Concomitant]
     Indication: HYPERTENSION
     Dates: start: 20090801, end: 20100329
  9. AMARYL [Concomitant]
     Indication: DIABETES MELLITUS
     Dates: end: 20100329
  10. LIPITOR [Concomitant]
     Indication: HYPERLIPIDAEMIA
     Dates: start: 20020101
  11. ACTOS [Concomitant]
     Indication: DIABETES MELLITUS
     Dates: start: 20070201, end: 20100329
  12. JANUVIA [Concomitant]
     Indication: DIABETES MELLITUS
     Dates: start: 20080201, end: 20100329
  13. GLUCOPHAGE [Concomitant]
     Indication: DIABETES MELLITUS
     Dates: start: 20000101, end: 20100329
  14. FISH OIL [Concomitant]
  15. HYDROCODONE BITARTRATE [Concomitant]
     Indication: PAIN
     Dates: start: 20090801
  16. IMODIUM [Concomitant]
     Indication: CONSTIPATION
     Dosage: UNK, AS NEEDED
     Dates: start: 20091001
  17. COMPAZINE [Concomitant]
     Indication: NAUSEA
     Dosage: UNK, AS NEEDED
     Dates: start: 20090901
  18. FIBERCON [Concomitant]
     Indication: SUPPLEMENTATION THERAPY
     Dates: end: 20100329
  19. TYLENOL (CAPLET) [Concomitant]
     Dosage: UNK, AS NEEDED
  20. ASPIRIN [Concomitant]
     Indication: PROPHYLAXIS
     Dates: start: 20020101

REACTIONS (1)
  - RENAL FAILURE ACUTE [None]
